FAERS Safety Report 17705864 (Version 1)
Quarter: 2020Q2

REPORT INFORMATION
  Report Type: Spontaneous
  Country: US (occurrence: US)
  Receive Date: 20200424
  Receipt Date: 20200424
  Transmission Date: 20200714
  Serious: Yes (Hospitalization, Disabling)
  Sender: FDA-Public Use
  Company Number: US-STRIDES ARCOLAB LIMITED-2020SP005006

PATIENT
  Sex: Male

DRUGS (4)
  1. AMANTADINE HYDROCHLORIDE. [Suspect]
     Active Substance: AMANTADINE HYDROCHLORIDE
     Dosage: UNK, INCREASING DOSAGE
     Route: 065
  2. AMANTADINE HYDROCHLORIDE. [Suspect]
     Active Substance: AMANTADINE HYDROCHLORIDE
     Dosage: 100 MG PER DAY RE-INITIATED ON DAY 10
     Route: 065
  3. AMANTADINE HYDROCHLORIDE. [Suspect]
     Active Substance: AMANTADINE HYDROCHLORIDE
     Indication: PARKINSON^S DISEASE
     Dosage: 400 MG PER DAY FOR THE LAST TWO YEARS
     Route: 065
  4. AMANTADINE HYDROCHLORIDE. [Suspect]
     Active Substance: AMANTADINE HYDROCHLORIDE
     Indication: TREMOR
     Dosage: 300 MG PER DAY FOR MANY YEARS
     Route: 065

REACTIONS (16)
  - Confusional state [Recovered/Resolved]
  - Speech disorder [Recovered/Resolved]
  - Withdrawal syndrome [Unknown]
  - Toxicity to various agents [Unknown]
  - Memory impairment [Recovered/Resolved]
  - Judgement impaired [Recovered/Resolved]
  - Gait disturbance [Recovered/Resolved]
  - Fall [Recovered/Resolved]
  - Disorientation [Recovered/Resolved]
  - Communication disorder [Recovered/Resolved]
  - Agitation [Recovered/Resolved]
  - Encephalopathy [Recovered/Resolved]
  - Hallucination [Recovered/Resolved]
  - Myoclonus [Recovered/Resolved]
  - Acute psychosis [Recovered/Resolved]
  - Delusion [Recovered/Resolved]
